FAERS Safety Report 6164354-0 (Version None)
Quarter: 2009Q2

REPORT INFORMATION
  Report Type: 
  Country: None (occurrence: None)
  Receive Date: 20090422
  Receipt Date: 20090414
  Transmission Date: 20091009
  Serious: Yes (Hospitalization)
  Sender: FDA-Public Use
  Company Number: US-ABBOTT-09P-163-0568211-00

PATIENT
  Sex: Male
  Weight: 98.064 kg

DRUGS (11)
  1. NIASPAN [Suspect]
     Indication: BLOOD TRIGLYCERIDES INCREASED
     Route: 048
     Dates: start: 20090301
  2. NIASPAN [Suspect]
     Indication: HIGH DENSITY LIPOPROTEIN DECREASED
  3. NIASPAN [Suspect]
     Indication: LOW DENSITY LIPOPROTEIN INCREASED
  4. ASPIRIN [Concomitant]
     Indication: CARDIOVASCULAR DISORDER
     Route: 048
     Dates: end: 20090301
  5. ASPIRIN [Concomitant]
     Route: 048
     Dates: start: 20090407
  6. METFORMIN HCL [Concomitant]
     Indication: DIABETES MELLITUS
     Route: 048
  7. GEMFIBROZIL [Concomitant]
     Indication: DIABETES MELLITUS
     Route: 048
  8. CELEXA [Concomitant]
     Indication: DEPRESSION
     Route: 048
  9. LEVOXYL [Concomitant]
     Indication: HYPOTHYROIDISM
     Route: 048
  10. LISINOPRIL AND HYDROCHLOROTHIAZIDE [Concomitant]
     Indication: HYPERTENSION
     Route: 048
  11. PRILOSEC [Concomitant]
     Indication: DYSPEPSIA
     Route: 048

REACTIONS (7)
  - BLOOD GLUCOSE INCREASED [None]
  - FLUSHING [None]
  - FULL BLOOD COUNT DECREASED [None]
  - GASTROINTESTINAL HAEMORRHAGE [None]
  - HAEMATEMESIS [None]
  - HIATUS HERNIA [None]
  - LUNG DISORDER [None]
